FAERS Safety Report 11928481 (Version 2)
Quarter: 2016Q1

REPORT INFORMATION
  Report Type: Spontaneous
  Country: IT (occurrence: IT)
  Receive Date: 20160119
  Receipt Date: 20160122
  Transmission Date: 20160526
  Serious: Yes (Life-Threatening)
  Sender: FDA-Public Use
  Company Number: PHHY2016IT003018

PATIENT
  Age: 49 Year
  Sex: Male

DRUGS (1)
  1. ALPRAZOLAM. [Suspect]
     Active Substance: ALPRAZOLAM
     Indication: ANXIETY
     Dosage: 7.5 MG, ONCE/SINGLE
     Route: 048
     Dates: start: 20150822, end: 20150822

REACTIONS (4)
  - Restlessness [Recovered/Resolved]
  - Loss of consciousness [Recovered/Resolved]
  - Anal incontinence [Recovered/Resolved]
  - Drug abuse [Recovered/Resolved]

NARRATIVE: CASE EVENT DATE: 20150822
